FAERS Safety Report 24570963 (Version 2)
Quarter: 2025Q2

REPORT INFORMATION
  Report Type: Spontaneous
  Country: US (occurrence: US)
  Receive Date: 20241101
  Receipt Date: 20250607
  Transmission Date: 20250717
  Serious: No
  Sender: STEMLINE THERAPEUTICS
  Company Number: US-STEMLINE THERAPEUTICS, INC-2024-STML-US004517

PATIENT

DRUGS (1)
  1. ORSERDU [Suspect]
     Active Substance: ELACESTRANT
     Indication: Product used for unknown indication
     Route: 065
     Dates: start: 20240812

REACTIONS (6)
  - Chromaturia [Unknown]
  - Myalgia [Unknown]
  - Gait inability [Unknown]
  - Bone pain [Unknown]
  - Headache [Unknown]
  - Fatigue [Unknown]
